FAERS Safety Report 23149868 (Version 1)
Quarter: 2023Q4

REPORT INFORMATION
  Report Type: Spontaneous
  Country: US (occurrence: US)
  Receive Date: 20231106
  Receipt Date: 20231106
  Transmission Date: 20240110
  Serious: No
  Sender: FDA-Public Use
  Company Number: US-JNJFOC-20231107864

PATIENT
  Age: 70 Year
  Sex: Female
  Weight: 88.4 kg

DRUGS (9)
  1. OPSUMIT [Suspect]
     Active Substance: MACITENTAN
     Indication: Pulmonary arterial hypertension
     Route: 048
  2. TREPROSTINIL [Suspect]
     Active Substance: TREPROSTINIL
     Indication: Pulmonary arterial hypertension
     Dosage: 5 MG IN THE MORNING AND 7 MG AT NIGHT
     Route: 048
     Dates: start: 20160318
  3. ADEMPAS [Suspect]
     Active Substance: RIOCIGUAT
     Indication: Product used for unknown indication
     Route: 065
  4. GLIMEPIRIDE [Concomitant]
     Active Substance: GLIMEPIRIDE
  5. PERPHENAZINE [Concomitant]
     Active Substance: PERPHENAZINE
  6. OXYGEN [Concomitant]
     Active Substance: OXYGEN
  7. GABAPENTIN [Concomitant]
     Active Substance: GABAPENTIN
  8. ZOLPIDEM TARTRATE [Concomitant]
     Active Substance: ZOLPIDEM TARTRATE
  9. BYSTOLIC [Concomitant]
     Active Substance: NEBIVOLOL HYDROCHLORIDE

REACTIONS (4)
  - Weight increased [Unknown]
  - Increased appetite [Unknown]
  - Hot flush [Unknown]
  - Headache [Unknown]
